FAERS Safety Report 22613550 (Version 1)
Quarter: 2023Q2

REPORT INFORMATION
  Report Type: Spontaneous
  Country: US (occurrence: US)
  Receive Date: 20230619
  Receipt Date: 20230619
  Transmission Date: 20230722
  Serious: No
  Sender: FDA-Public Use
  Company Number: US-GSK-US2023GSK083362

PATIENT
  Sex: Female

DRUGS (2)
  1. WELLBUTRIN XL [Suspect]
     Active Substance: BUPROPION HYDROCHLORIDE
     Indication: Product used for unknown indication
     Dosage: 300 MG, QD
     Route: 048
  2. WELLBUTRIN XL [Suspect]
     Active Substance: BUPROPION HYDROCHLORIDE
     Dosage: 300 MG, QD
     Route: 048

REACTIONS (9)
  - Lacrimation increased [Unknown]
  - Feeling abnormal [Unknown]
  - Feeling hot [Unknown]
  - Dizziness [Not Recovered/Not Resolved]
  - Dry mouth [Unknown]
  - Tinnitus [Unknown]
  - Disturbance in attention [Unknown]
  - Product quality issue [Unknown]
  - Product availability issue [Unknown]
